FAERS Safety Report 26181281 (Version 1)
Quarter: 2025Q4

REPORT INFORMATION
  Report Type: Spontaneous
  Country: CA (occurrence: CA)
  Receive Date: 20251221
  Receipt Date: 20251221
  Transmission Date: 20260118
  Serious: Yes (Other)
  Sender: BRISTOL-MYERS SQUIBB COMPANY
  Company Number: CA-BRISTOL-MYERS SQUIBB COMPANY-2025-166524

PATIENT
  Age: 14 Year
  Sex: Female

DRUGS (6)
  1. NIVOLUMAB [Suspect]
     Active Substance: NIVOLUMAB
     Indication: Epithelioid mesothelioma
     Dosage: SOLUTION INTRAVENOUS, CYCLICAL
     Route: 042
  2. YERVOY [Suspect]
     Active Substance: IPILIMUMAB
     Indication: Epithelioid mesothelioma
     Dosage: 50MG/10ML SINGLE USE VIALS, SOLUTION INTRAVENOUS, CYCLICAL
     Route: 042
  3. YERVOY [Suspect]
     Active Substance: IPILIMUMAB
     Dosage: 200MG/40 ML SINGLE USE VIALS, SOLUTION INTRAVENOUS, CYCLICAL
     Route: 042
  4. CISPLATIN [Concomitant]
     Active Substance: CISPLATIN
     Indication: Epithelioid mesothelioma
  5. PEMETREXED [Concomitant]
     Active Substance: PEMETREXED
     Indication: Product used for unknown indication
     Dosage: POWDER FOR SOLUTION
  6. PREDNISOLONE [Concomitant]
     Active Substance: PREDNISOLONE
     Indication: Product used for unknown indication

REACTIONS (4)
  - Anaphylactic reaction [Unknown]
  - Arthritis [Unknown]
  - Drug ineffective [Unknown]
  - Gastrointestinal disorder [Unknown]
